FAERS Safety Report 6741790-2 (Version None)
Quarter: 2010Q2

REPORT INFORMATION
  Report Type: 
  Country: None (occurrence: None)
  Receive Date: 20100526
  Receipt Date: 20100517
  Transmission Date: 20101027
  Serious: Yes (Hospitalization)
  Sender: FDA-Public Use
  Company Number: US-ROCHE-704518

PATIENT
  Age: 43 Year
  Sex: Male

DRUGS (1)
  1. ACCUTANE [Suspect]
     Dosage: TAKEN FOR SEVERAL MONTHS.
     Route: 048
     Dates: start: 20000101

REACTIONS (2)
  - DIVERTICULITIS [None]
  - MUCOSAL DRYNESS [None]
